FAERS Safety Report 8031828-7 (Version None)
Quarter: 2012Q1

REPORT INFORMATION
  Report Type: 
  Country: None (occurrence: None)
  Receive Date: 20120109
  Receipt Date: 20120104
  Transmission Date: 20120608
  Serious: Yes (Death, Life-Threatening, Hospitalization)
  Sender: FDA-Public Use
  Company Number: FR-PFIZER INC-2009244527

PATIENT
  Age: 17 Year
  Sex: Female

DRUGS (21)
  1. DEPAKENE [Suspect]
     Indication: EPILEPSY
     Dosage: UNK
     Route: 042
     Dates: start: 20081226
  2. DUPHALAC [Concomitant]
     Route: 048
  3. NEOSTIGMINE BROMIDE [Concomitant]
     Dosage: UNK
     Dates: start: 20081101
  4. ACICLOVIR [Concomitant]
     Dosage: UNK
     Dates: start: 20081101
  5. PIPERACILLIN AND TAZOBACTAM [Suspect]
     Indication: ESCHERICHIA INFECTION
     Dosage: UNK
     Route: 042
     Dates: start: 20081225
  6. DIPRIVAN [Suspect]
     Indication: SEDATION
     Dosage: UNK
     Route: 042
     Dates: start: 20081218
  7. KEPPRA [Suspect]
     Indication: EPILEPSY
     Dosage: UNK
     Route: 042
     Dates: start: 20081206
  8. AMIKACIN [Suspect]
     Indication: ESCHERICHIA INFECTION
     Dosage: UNK
     Route: 042
     Dates: start: 20081225
  9. PENTOTHAL [Suspect]
     Indication: SEDATION
     Dosage: UNK
     Route: 042
     Dates: start: 20081208
  10. URBANYL [Suspect]
     Indication: EPILEPSY
     Dosage: UNK
     Route: 042
     Dates: start: 20081215
  11. NEUPOGEN [Concomitant]
     Dosage: UNK
     Route: 042
     Dates: start: 20081101
  12. NOREPINEPHRINE BITARTRATE [Concomitant]
  13. SUFENTA PRESERVATIVE FREE [Suspect]
     Indication: SEDATION
     Dosage: UNK
     Route: 042
     Dates: start: 20081129, end: 20081225
  14. CLAFORAN [Concomitant]
     Dosage: UNK
     Dates: start: 20081101
  15. PANTOPRAZOLE SODIUM [Suspect]
     Indication: PROPHYLAXIS AGAINST GASTROINTESTINAL ULCER
     Dosage: UNK
     Route: 065
     Dates: start: 20081201
  16. VANCOMYCIN HCL [Suspect]
     Indication: PNEUMONIA STAPHYLOCOCCAL
     Dosage: UNK
     Route: 042
     Dates: start: 20081201
  17. SOLU-MEDROL [Concomitant]
     Dosage: UNK
     Route: 042
     Dates: start: 20081219, end: 20081221
  18. PARACETAMOL [Concomitant]
  19. FOSPHENYTOIN SODIUM [Suspect]
     Indication: EPILEPSY
     Dosage: 750 MG, CYCLIC
     Route: 042
     Dates: start: 20081211, end: 20081201
  20. PHENOBARBITAL TAB [Suspect]
     Indication: EPILEPSY
     Dosage: UNK
     Route: 042
     Dates: start: 20081201
  21. CYCLOPHOSPHAMIDE [Suspect]
     Indication: SJOGREN'S SYNDROME
     Dosage: 750 MG
     Dates: start: 20081211

REACTIONS (5)
  - MULTI-ORGAN FAILURE [None]
  - AGRANULOCYTOSIS [None]
  - PANCYTOPENIA [None]
  - SEPTIC SHOCK [None]
  - HISTIOCYTOSIS HAEMATOPHAGIC [None]
